FAERS Safety Report 22366525 (Version 1)
Quarter: 2023Q2

REPORT INFORMATION
  Report Type: Report from Study
  Country: IT (occurrence: IT)
  Receive Date: 20230525
  Receipt Date: 20230525
  Transmission Date: 20230722
  Serious: Yes (Death, Other)
  Sender: FDA-Public Use
  Company Number: IT-CELLTRION INC.-2022IT017537

PATIENT

DRUGS (46)
  1. RITUXIMAB [Suspect]
     Active Substance: RITUXIMAB
     Indication: Diffuse large B-cell lymphoma
     Dosage: 375 MG/M2, Q3W, ON 20/JUL/2022, SHE RECEIVED MOST RECENT DOSE 375 MGM2 OF STUDY DRUG RITUXIMAB PRIOR
     Route: 042
     Dates: start: 20220629
  2. POLATUZUMAB VEDOTIN [Suspect]
     Active Substance: POLATUZUMAB VEDOTIN
     Indication: Diffuse large B-cell lymphoma
     Dosage: 160 MG, ON 20/JUL/2022, SHE RECEIVED MOST RECENT DOSE 138.6 MG OF STUDY DRUG POLATUZUMAB VEDOTIN PRI
     Route: 042
     Dates: start: 20220629
  3. GLOFITAMAB [Suspect]
     Active Substance: GLOFITAMAB
     Indication: Diffuse large B-cell lymphoma
     Dosage: DOSE OF STUDY DRUG FIRST ADMINISTERED 2.5 MG DOSE LAST STUDY DRUG ADMIN PRIOR AE 2.5 MG TOTAL VOLUME
     Route: 042
     Dates: start: 20220727
  4. PREDNISONE [Suspect]
     Active Substance: PREDNISONE
     Indication: Diffuse large B-cell lymphoma
     Dosage: 100 MG, ON 04/SEP/2022, SHE RECEIVED MOST RECENT DOSE 100 MG OF STUDY DRUG PREDNISONE PRIOR TO AE. 0
     Route: 048
     Dates: start: 20220630
  5. METHYLPREDNISOLONE [Suspect]
     Active Substance: METHYLPREDNISOLONE
     Indication: Diffuse large B-cell lymphoma
     Dosage: 80 MG, ON 31-AUG-2022 10:40 AM SHE RECEIVED MOST RECENT DOSE 80 MG OF STUDY DRUG METHYPREDNISOLONE P
     Route: 048
     Dates: start: 20220629
  6. DOXORUBICIN [Suspect]
     Active Substance: DOXORUBICIN
     Indication: Diffuse large B-cell lymphoma
     Dosage: 50 MG/M2, EVERY 3 WEEKS, ON 31-AUG-2022 4:35 PM, SHE RECEIVED MOST RECENT DOSE 50 MG/M2 OF STUDY DRU
     Route: 042
     Dates: start: 20220629
  7. CYCLOPHOSPHAMIDE [Suspect]
     Active Substance: CYCLOPHOSPHAMIDE
     Indication: Diffuse large B-cell lymphoma
     Dosage: UNK
  8. CYCLOPHOSPHAMIDE [Suspect]
     Active Substance: CYCLOPHOSPHAMIDE
     Dosage: 750 MG/M2, Q3W, ON31-AUG-2022 3:30 AM SHE RECEIVED MOST RECENT DOSE 750 MG/M2 OF STUDY DRUG CYCLOPHO
     Route: 042
     Dates: start: 20220629
  9. LEVOFLOXACIN [Concomitant]
     Active Substance: LEVOFLOXACIN
     Indication: Neutropenia
     Dosage: UNK
     Dates: start: 20220730, end: 20220802
  10. ACETAMINOPHEN [Concomitant]
     Active Substance: ACETAMINOPHEN
     Dosage: 1000 MILLIGRAM, QD
     Dates: start: 20220629, end: 20220629
  11. ACETAMINOPHEN [Concomitant]
     Active Substance: ACETAMINOPHEN
     Dosage: 1000 MILLIGRAM
     Dates: start: 20220720, end: 20220720
  12. ACETAMINOPHEN [Concomitant]
     Active Substance: ACETAMINOPHEN
     Dosage: 1000 MG, QD
     Dates: start: 20220817, end: 20220817
  13. ACETAMINOPHEN [Concomitant]
     Active Substance: ACETAMINOPHEN
     Dosage: 1000 MG, QD
     Dates: start: 20220831, end: 20220831
  14. PALONOSETRON [Concomitant]
     Active Substance: PALONOSETRON
     Dosage: 0.5 MILLIGRAM
     Dates: start: 20220629, end: 20220629
  15. PALONOSETRON [Concomitant]
     Active Substance: PALONOSETRON
     Dosage: 0.5 MILLIGRAM
     Dates: start: 20220720, end: 20220720
  16. PALONOSETRON [Concomitant]
     Active Substance: PALONOSETRON
     Dosage: UNK
     Dates: start: 20220831, end: 20220831
  17. PALONOSETRON [Concomitant]
     Active Substance: PALONOSETRON
     Dosage: UNK
     Dates: start: 20220810, end: 20220810
  18. CEFIXIME [Concomitant]
     Active Substance: CEFIXIME
     Dosage: 400 MILLIGRAM
     Dates: start: 20220705, end: 20220709
  19. DEXAMETHASONE [Concomitant]
     Active Substance: DEXAMETHASONE
     Dosage: 20 MILLIGRAM
     Dates: start: 20220727, end: 20220727
  20. DEXAMETHASONE [Concomitant]
     Active Substance: DEXAMETHASONE
     Dosage: 5 MILLIGRAM
     Dates: start: 20220817, end: 20220817
  21. ENOXAPARIN SODIUM [Concomitant]
     Active Substance: ENOXAPARIN SODIUM
     Dosage: 6000 INTERNATIONAL UNIT
     Dates: start: 20220701, end: 20220704
  22. ENOXAPARIN SODIUM [Concomitant]
     Active Substance: ENOXAPARIN SODIUM
     Dosage: 6000 INTERNATIONAL UNIT
     Dates: start: 20220719, end: 20220721
  23. PANTOPRAZOLE [Concomitant]
     Active Substance: PANTOPRAZOLE
     Indication: Prophylaxis
     Dosage: 40 MILLIGRAM
     Dates: start: 20220705, end: 20220816
  24. PANTOPRAZOLE [Concomitant]
     Active Substance: PANTOPRAZOLE
     Dosage: 40 MILLIGRAM
     Dates: start: 20220629, end: 20220629
  25. PANTOPRAZOLE [Concomitant]
     Active Substance: PANTOPRAZOLE
     Dosage: 40 MILLIGRAM
     Dates: start: 20220720, end: 20220720
  26. PANTOPRAZOLE [Concomitant]
     Active Substance: PANTOPRAZOLE
     Dosage: 40 MILLIGRAM
     Dates: start: 20220817, end: 20220817
  27. PANTOPRAZOLE [Concomitant]
     Active Substance: PANTOPRAZOLE
     Dosage: 40 MILLIGRAM
     Dates: start: 20220810, end: 20220810
  28. PANTOPRAZOLE [Concomitant]
     Active Substance: PANTOPRAZOLE
     Dosage: 40 MILLIGRAM, EVERY 0.5 DAY
     Dates: start: 20220623, end: 20220705
  29. PANTOPRAZOLE [Concomitant]
     Active Substance: PANTOPRAZOLE
     Dosage: 40 MILLIGRAM
     Dates: start: 20220831, end: 20220831
  30. PANTOPRAZOLE [Concomitant]
     Active Substance: PANTOPRAZOLE
     Dosage: 40 MILLIGRAM
     Dates: start: 20220727, end: 20220727
  31. PANTOPRAZOLE [Concomitant]
     Active Substance: PANTOPRAZOLE
     Dosage: 40 MILLIGRAM
     Dates: start: 20220817, end: 20220825
  32. PANTOPRAZOLE [Concomitant]
     Active Substance: PANTOPRAZOLE
     Dosage: 40 MILLIGRAM
     Dates: start: 20220826
  33. MYCOSTATIN [Concomitant]
     Active Substance: NYSTATIN
     Dosage: UNK
     Dates: start: 20220705
  34. ACYCLOVIR [Concomitant]
     Active Substance: ACYCLOVIR
     Dosage: 400 MILLIGRAM
     Dates: start: 20220706
  35. FASTURTEC [Concomitant]
     Active Substance: RASBURICASE
     Dosage: 7.5 MILLIGRAM
     Dates: start: 20220721, end: 20220721
  36. FASTURTEC [Concomitant]
     Active Substance: RASBURICASE
     Dosage: 7.5 MILLIGRAM
     Dates: start: 20220629, end: 20220704
  37. ENOXAPARIN SODIUM [Concomitant]
     Active Substance: ENOXAPARIN SODIUM
     Dosage: 4000 INTERNATIONAL UNIT
     Dates: start: 20220705, end: 20220718
  38. ENOXAPARIN SODIUM [Concomitant]
     Active Substance: ENOXAPARIN SODIUM
     Dosage: 4000 INTERNATIONAL UNIT
     Dates: start: 20220722, end: 20220819
  39. CHLORPHENIRAMINE [Concomitant]
     Active Substance: CHLORPHENIRAMINE
     Dosage: 5 MILLIGRAM
     Dates: start: 20220817, end: 20220817
  40. CHLORPHENIRAMINE [Concomitant]
     Active Substance: CHLORPHENIRAMINE
     Dosage: 10 MILLIGRAM
     Dates: start: 20220629, end: 20220629
  41. CHLORPHENIRAMINE [Concomitant]
     Active Substance: CHLORPHENIRAMINE
     Dosage: 5 MILLIGRAM
     Dates: start: 20220810, end: 20220810
  42. CHLORPHENIRAMINE [Concomitant]
     Active Substance: CHLORPHENIRAMINE
     Dosage: UNK
     Dates: start: 20220727, end: 20220727
  43. CHLORPHENIRAMINE [Concomitant]
     Active Substance: CHLORPHENIRAMINE
     Dosage: 5 MILLIGRAM
     Dates: start: 20220720, end: 20220720
  44. CHLORPHENIRAMINE [Concomitant]
     Active Substance: CHLORPHENIRAMINE
     Dosage: 5 MILLIGRAM
     Dates: start: 20220831, end: 20220831
  45. CEFTRIAXONE [Concomitant]
     Active Substance: CEFTRIAXONE
     Dosage: 2 G
     Dates: start: 20220817, end: 20220817
  46. FONDAPARINUX [Concomitant]
     Active Substance: FONDAPARINUX
     Dosage: 2.5 MILLIGRAM, EVERY 0.5 DAY

REACTIONS (3)
  - Death [Fatal]
  - Neutropenia [Recovered/Resolved]
  - Neutropenia [Recovered/Resolved]

NARRATIVE: CASE EVENT DATE: 20220729
